FAERS Safety Report 7720308-1 (Version None)
Quarter: 2011Q3

REPORT INFORMATION
  Report Type: 
  Country: None (occurrence: None)
  Receive Date: 20110831
  Receipt Date: 20110829
  Transmission Date: 20111222
  Serious: Yes (Other)
  Sender: FDA-Public Use
  Company Number: US-PFIZER INC-2011187957

PATIENT
  Sex: Female
  Weight: 68.027 kg

DRUGS (4)
  1. PREMARIN [Suspect]
     Dosage: 1.25 MG, 1X/DAY
     Dates: start: 19820101, end: 20110101
  2. PREMARIN [Suspect]
     Indication: MENOPAUSAL SYMPTOMS
     Dosage: 0.265 MG, 1X/DAY
     Route: 048
     Dates: start: 19820101
  3. PRAVASTATIN [Concomitant]
     Indication: BLOOD CHOLESTEROL INCREASED
     Dosage: 80 MG, DAILY
  4. PREMARIN [Suspect]
     Dosage: UNK
     Route: 048
     Dates: start: 19820101, end: 20110101

REACTIONS (5)
  - ANXIETY [None]
  - NERVOUSNESS [None]
  - BLOOD PRESSURE ABNORMAL [None]
  - SOMNOLENCE [None]
  - HOT FLUSH [None]
